FAERS Safety Report 25784491 (Version 2)
Quarter: 2025Q4

REPORT INFORMATION
  Report Type: Spontaneous
  Country: US (occurrence: US)
  Receive Date: 20250910
  Receipt Date: 20251004
  Transmission Date: 20260118
  Serious: No
  Sender: NOVARTIS
  Company Number: US-002147023-NVSC2025US137189

PATIENT
  Age: 35 Year
  Sex: Male

DRUGS (1)
  1. VANRAFIA [Suspect]
     Active Substance: ATRASENTAN HYDROCHLORIDE
     Indication: IgA nephropathy
     Dosage: 0.75 MG, QD
     Route: 048
     Dates: start: 20250810, end: 20250829

REACTIONS (2)
  - Oedema [Recovered/Resolved]
  - Dyspnoea [Recovered/Resolved]

NARRATIVE: CASE EVENT DATE: 20250815
